FAERS Safety Report 9411471 (Version 2)
Quarter: 2013Q4

REPORT INFORMATION
  Report Type: Spontaneous
  Country: US (occurrence: US)
  Receive Date: 20130722
  Receipt Date: 20131010
  Transmission Date: 20140711
  Serious: Yes (Death)
  Sender: FDA-Public Use
  Company Number: US-BRISTOL-MYERS SQUIBB COMPANY-19114875

PATIENT
  Sex: Female

DRUGS (2)
  1. ELIQUIS [Suspect]
  2. LIPITOR [Interacting]

REACTIONS (2)
  - Pneumonia [Fatal]
  - Drug interaction [Unknown]
